FAERS Safety Report 19839278 (Version 1)
Quarter: 2021Q3

REPORT INFORMATION
  Report Type: Spontaneous
  Country: US (occurrence: US)
  Receive Date: 20210915
  Receipt Date: 20210915
  Transmission Date: 20211014
  Serious: No
  Sender: FDA-Public Use
  Company Number: None

PATIENT
  Age: 63 Year
  Sex: Female
  Weight: 78.75 kg

DRUGS (4)
  1. PREDNISONE. [Suspect]
     Active Substance: PREDNISONE
  2. HYDROCORTISONE. [Suspect]
     Active Substance: HYDROCORTISONE
     Indication: DERMATITIS ATOPIC
  3. KENALOG [Suspect]
     Active Substance: TRIAMCINOLONE ACETONIDE
  4. TRIAMCINOLONE [Suspect]
     Active Substance: TRIAMCINOLONE

REACTIONS (17)
  - Pyrexia [None]
  - Fatigue [None]
  - Rash erythematous [None]
  - Rash [None]
  - Pruritus [None]
  - Feeling abnormal [None]
  - Product prescribing issue [None]
  - Chills [None]
  - Condition aggravated [None]
  - Wound haemorrhage [None]
  - Oedema [None]
  - Dry skin [None]
  - Generalised oedema [None]
  - Skin exfoliation [None]
  - Dermatitis contact [None]
  - Erythema [None]
  - Skin depigmentation [None]

NARRATIVE: CASE EVENT DATE: 20181031
